FAERS Safety Report 9154214 (Version 1)
Quarter: 2013Q1

REPORT INFORMATION
  Report Type: Spontaneous
  Country: US (occurrence: None)
  Receive Date: 20130308
  Receipt Date: 20130308
  Transmission Date: 20140127
  Serious: No
  Sender: FDA-Public Use
  Company Number: None

PATIENT
  Age: 24 Year
  Sex: Male

DRUGS (3)
  1. EFFEXOR XR [Suspect]
     Indication: ANXIETY
     Dosage: 75MG QAM ORAL?
     Route: 048
     Dates: start: 200409, end: 201009
  2. EFFEXOR XR [Suspect]
     Dosage: 75MG QAM ORAL?
     Route: 048
     Dates: start: 200409, end: 201009
  3. CLONAZEPAM [Concomitant]

REACTIONS (2)
  - Therapeutic response decreased [None]
  - Product substitution issue [None]
